FAERS Safety Report 20207307 (Version 2)
Quarter: 2024Q1

REPORT INFORMATION
  Report Type: Spontaneous
  Country: US (occurrence: US)
  Receive Date: 20211220
  Receipt Date: 20240201
  Transmission Date: 20240410
  Serious: Yes (Other)
  Sender: FDA-Public Use
  Company Number: US-NOVEN PHARMACEUTICALS, INC.-2021US001478

PATIENT
  Age: 66 Year
  Sex: Female

DRUGS (2)
  1. ESTRADIOL [Suspect]
     Active Substance: ESTRADIOL
     Indication: Hot flush
     Dosage: 0.0375 MG, UNKNOWN
     Route: 062
     Dates: start: 2019, end: 2019
  2. PROMETRIUM [Concomitant]
     Active Substance: PROGESTERONE
     Indication: Hot flush
     Dosage: UNKNOWN
     Dates: start: 2008

REACTIONS (2)
  - Breast cancer female [Unknown]
  - Drug ineffective [Recovered/Resolved]

NARRATIVE: CASE EVENT DATE: 20190101
